FAERS Safety Report 21492749 (Version 1)
Quarter: 2022Q4

REPORT INFORMATION
  Report Type: Spontaneous
  Country: GB (occurrence: GB)
  Receive Date: 20221021
  Receipt Date: 20221021
  Transmission Date: 20230112
  Serious: Yes (Other)
  Sender: FDA-Public Use
  Company Number: GB-MHRA-MED-202210180857260230-HLKZF

PATIENT
  Age: 69 Year
  Sex: Female
  Weight: 60 kg

DRUGS (3)
  1. RITUXIMAB [Suspect]
     Active Substance: RITUXIMAB
     Indication: Skin cancer
     Dosage: UNK
     Dates: start: 20220830, end: 20220915
  2. RITUXIMAB [Suspect]
     Active Substance: RITUXIMAB
     Indication: Rheumatoid arthritis
  3. LEVOTHYROXINE [Concomitant]
     Active Substance: LEVOTHYROXINE
     Indication: Thyroid disorder
     Dosage: UNK

REACTIONS (5)
  - Depressed mood [Not Recovered/Not Resolved]
  - Mood swings [Unknown]
  - Tearfulness [Unknown]
  - Anger [Unknown]
  - Insomnia [Unknown]

NARRATIVE: CASE EVENT DATE: 20220830
